FAERS Safety Report 7938667 (Version 5)
Quarter: 2013Q3

REPORT INFORMATION
  Report Type: Spontaneous
  Country: US (occurrence: US)
  Receive Date: 20110510
  Receipt Date: 20130722
  Transmission Date: 20140515
  Serious: Yes (Hospitalization)
  Sender: FDA-Public Use
  Company Number: US-JNJFOC-20110411732

PATIENT
  Age: 29 Year
  Sex: Female
  Weight: 58.97 kg

DRUGS (3)
  1. REMICADE [Suspect]
     Indication: CROHN^S DISEASE
     Route: 042
     Dates: start: 20110304, end: 20110304
  2. REMICADE [Suspect]
     Indication: CROHN^S DISEASE
     Route: 042
     Dates: start: 200301, end: 200301
  3. PENTASA [Concomitant]

REACTIONS (16)
  - Meningitis viral [Recovered/Resolved]
  - Urticaria [Recovered/Resolved]
  - Abasia [Recovered/Resolved]
  - Infusion related reaction [Recovering/Resolving]
  - Memory impairment [Recovered/Resolved]
  - Bronchospasm [Recovered/Resolved]
  - Urticaria [Unknown]
  - Vulvovaginal pruritus [Recovered/Resolved]
  - Skin mass [Recovering/Resolving]
  - Feeling hot [Recovered/Resolved]
  - Fatigue [Recovered/Resolved]
  - Night sweats [Recovering/Resolving]
  - Vitamin D deficiency [Unknown]
  - Blood iron decreased [Unknown]
  - Pruritus [Recovered/Resolved]
  - Weight increased [Not Recovered/Not Resolved]
